FAERS Safety Report 5707497-5 (Version None)
Quarter: 2008Q2

REPORT INFORMATION
  Report Type: 
  Country: None (occurrence: None)
  Receive Date: 20080416
  Receipt Date: 20080404
  Transmission Date: 20081010
  Serious: Yes (Hospitalization, Other)
  Sender: FDA-Public Use
  Company Number: JP-PFIZER INC-2008022147

PATIENT
  Age: 82 Year
  Sex: Male
  Weight: 46.6 kg

DRUGS (8)
  1. VFEND [Suspect]
     Indication: BRONCHOPULMONARY ASPERGILLOSIS
     Route: 048
     Dates: start: 20080225, end: 20080302
  2. CALSLOT [Concomitant]
     Route: 048
  3. COVERSYL [Concomitant]
     Route: 048
  4. MICARDIS [Concomitant]
     Route: 048
  5. PLETAL [Concomitant]
     Route: 048
  6. LORAZEPAM [Concomitant]
     Route: 048
  7. SPIRIVA [Concomitant]
  8. HOKUNALIN [Concomitant]
     Route: 062

REACTIONS (2)
  - CARDIAC FAILURE [None]
  - GENERALISED OEDEMA [None]
